FAERS Safety Report 23829420 (Version 1)
Quarter: 2024Q2

REPORT INFORMATION
  Report Type: Spontaneous
  Country: US (occurrence: US)
  Receive Date: 20240508
  Receipt Date: 20240508
  Transmission Date: 20240716
  Serious: No
  Sender: FDA-Public Use
  Company Number: US-DRL-USA-LIT/USA/24/0006606

PATIENT
  Age: 36 Year
  Sex: Female

DRUGS (8)
  1. CETIRIZINE [Suspect]
     Active Substance: CETIRIZINE HYDROCHLORIDE
     Indication: Herpes gestationis
     Route: 048
  2. DIPHENHYDRAMINE [Suspect]
     Active Substance: DIPHENHYDRAMINE
     Indication: Herpes gestationis
     Route: 061
  3. HYDROCORTISONE [Suspect]
     Active Substance: HYDROCORTISONE
     Indication: Herpes gestationis
     Route: 061
  4. TRIAMCINOLONE [Suspect]
     Active Substance: TRIAMCINOLONE
     Indication: Herpes gestationis
     Route: 061
  5. CLOBETASOL [Suspect]
     Active Substance: CLOBETASOL
     Indication: Herpes gestationis
     Route: 061
  6. PREDNISONE [Suspect]
     Active Substance: PREDNISONE
     Indication: Herpes gestationis
     Dosage: 40 MG (0.5 MG/KG) DAILY FOR 2 WEEKS
     Route: 048
  7. DUPILUMAB [Suspect]
     Active Substance: DUPILUMAB
     Indication: Herpes gestationis
     Dosage: 300 MG EVERY 2 WEEKS
     Route: 061
  8. DUPILUMAB [Suspect]
     Active Substance: DUPILUMAB
     Dosage: LOADING DOSE OF 600 MG ADMINISTERED
     Route: 061

REACTIONS (4)
  - Normal newborn [Recovered/Resolved]
  - Exposure during pregnancy [Recovered/Resolved]
  - Drug ineffective [Unknown]
  - Product use in unapproved indication [Unknown]
